FAERS Safety Report 4816969-7 (Version None)
Quarter: 2005Q4

REPORT INFORMATION
  Report Type: 
  Country: None (occurrence: None)
  Receive Date: 20051031
  Receipt Date: 20051031
  Transmission Date: 20060501
  Serious: Yes (Hospitalization)
  Sender: FDA-Public Use
  Company Number: None

PATIENT
  Sex: Female

DRUGS (15)
  1. ETODOLAC [Suspect]
     Indication: PAIN
  2. COMBIVENT [Concomitant]
  3. FOSAMAX [Concomitant]
  4. ATENOLOL [Concomitant]
  5. VERAPAMIL [Concomitant]
  6. ALBUTEROL MDI INH [Concomitant]
  7. ALBUTEROL /IPRATROPIUM IHN [Concomitant]
  8. ALBUTEROL/IPRATROPIUM SOLN, INH [Concomitant]
  9. ATENOLOL [Concomitant]
  10. FAMOTIDINE [Concomitant]
  11. MORPHINE [Concomitant]
  12. NITROGLYCERIN [Concomitant]
  13. PROMETHAZINE HCL [Concomitant]
  14. TEMAZEPAM [Concomitant]
  15. VERAPAMIL HCL [Concomitant]

REACTIONS (1)
  - GASTRITIS [None]
